FAERS Safety Report 10548029 (Version 1)
Quarter: 2014Q4

REPORT INFORMATION
  Report Type: Spontaneous
  Country: US (occurrence: None)
  Receive Date: 20141027
  Receipt Date: 20141027
  Transmission Date: 20150529
  Serious: No
  Sender: FDA-Public Use
  Company Number: None

PATIENT
  Age: 63 Year
  Sex: Female
  Weight: 147.87 kg

DRUGS (1)
  1. ENOXAPARIN SODIUM. [Suspect]
     Active Substance: ENOXAPARIN SODIUM
     Indication: DEEP VEIN THROMBOSIS
     Dosage: 150 MG/ML INJECTION TWICE DAILY GIVEN ITNO/UNDER THE SKIN
     Dates: start: 20141017, end: 20141020

REACTIONS (3)
  - Pruritus [None]
  - Urticaria [None]
  - Rash macular [None]

NARRATIVE: CASE EVENT DATE: 20141017
